FAERS Safety Report 4824176-7 (Version None)
Quarter: 2005Q4

REPORT INFORMATION
  Report Type: 
  Country: None (occurrence: None)
  Receive Date: 20051109
  Receipt Date: 20051031
  Transmission Date: 20060501
  Serious: Yes (Hospitalization)
  Sender: FDA-Public Use
  Company Number: US-ABBOTT-05P-163-0316001-00

PATIENT
  Sex: Female
  Weight: 95 kg

DRUGS (8)
  1. HUMIRA [Suspect]
     Indication: RHEUMATOID ARTHRITIS
     Route: 058
     Dates: start: 20030901
  2. SULFASALAZINE [Concomitant]
     Indication: RHEUMATOID ARTHRITIS
     Route: 048
  3. OXYCOCET [Concomitant]
     Indication: PAIN
     Route: 048
  4. BISOPROLOL FUMARATE [Concomitant]
     Indication: BLOOD PRESSURE INCREASED
     Route: 048
  5. OMEPRAZOLE [Concomitant]
     Indication: GASTRITIS
     Route: 048
  6. SERTRALINE HYDROCHLORIDE [Concomitant]
     Indication: ANXIETY
     Route: 048
     Dates: start: 20020101
  7. ATORVASTATIN CALCIUM [Concomitant]
     Indication: BLOOD CHOLESTEROL INCREASED
     Route: 048
  8. MULTI-VITAMINS [Concomitant]
     Indication: VITAMIN SUPPLEMENTATION
     Route: 048

REACTIONS (13)
  - BLOOD PRESSURE INCREASED [None]
  - BRONCHITIS [None]
  - CHEST DISCOMFORT [None]
  - CHEST PAIN [None]
  - DYSPEPSIA [None]
  - DYSPHONIA [None]
  - EYE SWELLING [None]
  - HEADACHE [None]
  - INJECTION SITE IRRITATION [None]
  - INJECTION SITE PAIN [None]
  - MUSCLE SPASMS [None]
  - PROCEDURAL COMPLICATION [None]
  - WHEEZING [None]
